FAERS Safety Report 10874997 (Version 1)
Quarter: 2015Q1

REPORT INFORMATION
  Report Type: Spontaneous
  Country: US (occurrence: US)
  Receive Date: 20150227
  Receipt Date: 20150227
  Transmission Date: 20150721
  Serious: No
  Sender: FDA-Public Use
  Company Number: US-BAYER-2015-026243

PATIENT
  Age: 20 Year
  Sex: Female

DRUGS (1)
  1. GADAVIST [Suspect]
     Active Substance: GADOBUTROL
     Indication: SCAN BRAIN
     Dosage: UNK, ONCE
     Dates: start: 20150217, end: 20150217

REACTIONS (1)
  - Injection site extravasation [None]

NARRATIVE: CASE EVENT DATE: 20150217
